FAERS Safety Report 9771798 (Version 1)
Quarter: 2013Q4

REPORT INFORMATION
  Report Type: Spontaneous
  Country: BR (occurrence: BR)
  Receive Date: 20131219
  Receipt Date: 20131219
  Transmission Date: 20140711
  Serious: Yes (Hospitalization)
  Sender: FDA-Public Use
  Company Number: BR-ASTRAZENECA-2013SE91192

PATIENT
  Age: 83 Year
  Sex: Male
  Weight: 95 kg

DRUGS (3)
  1. SYMBICORT TURBUHALER [Suspect]
     Indication: DYSPNOEA
     Dosage: UNKNOWN DOSE AND FREQUENCY
     Route: 055
  2. BRILINTA [Suspect]
     Indication: VENOUS OCCLUSION
     Dosage: UNKNOWN
     Route: 048
     Dates: start: 20131212
  3. SEVERAL UNSPECIFIED MEDICATIONS [Concomitant]

REACTIONS (2)
  - Venous occlusion [Recovered/Resolved]
  - Off label use [Not Recovered/Not Resolved]
